FAERS Safety Report 22276539 (Version 2)
Quarter: 2023Q2

REPORT INFORMATION
  Report Type: Spontaneous
  Country: US (occurrence: None)
  Receive Date: 20230503
  Receipt Date: 20230626
  Transmission Date: 20230721
  Serious: No
  Sender: FDA-Public Use
  Company Number: 2023A098699

PATIENT
  Age: 1066 Month
  Sex: Female

DRUGS (1)
  1. BREZTRI [Suspect]
     Active Substance: BUDESONIDE\FORMOTEROL\GLYCOPYRROLATE
     Route: 055

REACTIONS (5)
  - General physical health deterioration [Unknown]
  - Product dose omission issue [Unknown]
  - Device malfunction [Unknown]
  - Dyspnoea [Unknown]
  - Device use issue [Unknown]

NARRATIVE: CASE EVENT DATE: 20230401
